FAERS Safety Report 7100316-4 (Version None)
Quarter: 2010Q4

REPORT INFORMATION
  Report Type: 
  Country: None (occurrence: None)
  Receive Date: 20101112
  Receipt Date: 20101103
  Transmission Date: 20110411
  Serious: Yes (Life-Threatening)
  Sender: FDA-Public Use
  Company Number: DE-GENENTECH-308762

PATIENT
  Sex: Male
  Weight: 85 kg

DRUGS (5)
  1. MABTHERA [Suspect]
     Indication: WEGENER'S GRANULOMATOSIS
     Dosage: 1 G, UNK
     Route: 042
     Dates: start: 20090930
  2. URBASON [Suspect]
     Indication: WEGENER'S GRANULOMATOSIS
     Dosage: UNK
     Route: 048
     Dates: start: 20090701
  3. URBASON [Suspect]
     Route: 048
  4. AZATHIOPRINE [Concomitant]
     Indication: WEGENER'S GRANULOMATOSIS
     Dosage: UNK
     Dates: start: 20080901, end: 20100921
  5. CALCILAC [Concomitant]
     Indication: OSTEOPOROSIS PROPHYLAXIS

REACTIONS (1)
  - PNEUMOCYSTIS JIROVECI PNEUMONIA [None]
